FAERS Safety Report 8024174-9 (Version None)
Quarter: 2012Q1

REPORT INFORMATION
  Report Type: 
  Country: None (occurrence: None)
  Receive Date: 20120103
  Receipt Date: 20111221
  Transmission Date: 20120608
  Serious: Yes (Death)
  Sender: FDA-Public Use
  Company Number: 1000026533

PATIENT
  Age: 22 Year
  Sex: Female

DRUGS (2)
  1. CELEXA [Suspect]
     Indication: DEPRESSION
     Dosage: (1 IN 1 D), ORAL
     Route: 048
     Dates: start: 20090801, end: 20091102
  2. ZYPREXA [Concomitant]

REACTIONS (3)
  - WOUND [None]
  - COMPLETED SUICIDE [None]
  - INTENTIONAL SELF-INJURY [None]
